FAERS Safety Report 12709273 (Version 1)
Quarter: 2016Q3

REPORT INFORMATION
  Report Type: Spontaneous
  Country: US (occurrence: US)
  Receive Date: 20160901
  Receipt Date: 20160901
  Transmission Date: 20161109
  Serious: No
  Sender: FDA-Public Use
  Company Number: US-ELI_LILLY_AND_COMPANY-US201608013222

PATIENT
  Age: 72 Year
  Sex: Female

DRUGS (2)
  1. LEVEMIR [Concomitant]
     Active Substance: INSULIN DETEMIR
  2. HUMALOG MIX75/25 [Suspect]
     Active Substance: INSULIN LISPRO
     Indication: TYPE 2 DIABETES MELLITUS
     Dosage: 8 U, TID
     Route: 065
     Dates: start: 201603

REACTIONS (2)
  - Pain in extremity [Unknown]
  - Injury associated with device [Unknown]

NARRATIVE: CASE EVENT DATE: 20160826
